FAERS Safety Report 9524124 (Version 1)
Quarter: 2013Q3

REPORT INFORMATION
  Report Type: Spontaneous
  Country: AU (occurrence: None)
  Receive Date: 20130912
  Receipt Date: 20130912
  Transmission Date: 20140515
  Serious: Yes (Other)
  Sender: FDA-Public Use
  Company Number: 1887748

PATIENT
  Age: 58 Year
  Sex: Male

DRUGS (7)
  1. IRINOTECAN HYDROCHLORIDE [Suspect]
     Indication: RECTAL CANCER STAGE III
  2. FLUOROURACIL [Suspect]
     Indication: RECTAL CANCER STAGE III
  3. BEVACIZUMAB [Suspect]
     Indication: RECTAL CANCER STAGE III
  4. DEXAMETHASONE [Suspect]
     Indication: RECTAL CANCER STAGE III
     Route: 048
  5. THERAPEUTIC RADIOPHARMACEUTICALS [Concomitant]
  6. HYDROCORTISONE ACETATE [Concomitant]
  7. CHLOROCRESOL [Concomitant]

REACTIONS (3)
  - Genital herpes zoster [None]
  - Acquired phimosis [None]
  - Infection in an immunocompromised host [None]
